FAERS Safety Report 15403922 (Version 1)
Quarter: 2018Q3

REPORT INFORMATION
  Report Type: Spontaneous
  Country: FR (occurrence: FR)
  Receive Date: 20180919
  Receipt Date: 20180919
  Transmission Date: 20181010
  Serious: Yes (Hospitalization)
  Sender: FDA-Public Use
  Company Number: FR-MYLANLABS-2018M1068264

PATIENT
  Age: 2 Year
  Sex: Male

DRUGS (38)
  1. AZATHIOPRINE. [Suspect]
     Active Substance: AZATHIOPRINE
     Indication: GRAFT VERSUS HOST DISEASE IN GASTROINTESTINAL TRACT
     Dosage: UNK
  2. MYCOPHENOLATE MOFETIL. [Suspect]
     Active Substance: MYCOPHENOLATE MOFETIL
     Indication: ABDOMINAL PAIN
     Dosage: UNK
  3. INFLIXIMAB [Suspect]
     Active Substance: INFLIXIMAB
     Indication: GRAFT VERSUS HOST DISEASE IN GASTROINTESTINAL TRACT
     Dosage: UNK
  4. AZATHIOPRINE. [Suspect]
     Active Substance: AZATHIOPRINE
     Indication: DIARRHOEA
     Dosage: UNK
  5. AZATHIOPRINE. [Suspect]
     Active Substance: AZATHIOPRINE
     Indication: ACUTE GRAFT VERSUS HOST DISEASE
     Dosage: UNK
  6. MYCOPHENOLATE MOFETIL. [Suspect]
     Active Substance: MYCOPHENOLATE MOFETIL
     Indication: DIARRHOEA
     Dosage: UNK
  7. INOLIMOMAB [Suspect]
     Active Substance: INOLIMOMAB
     Indication: ABDOMINAL PAIN
     Dosage: UNK
  8. INOLIMOMAB [Suspect]
     Active Substance: INOLIMOMAB
     Dosage: UNK
  9. AZATHIOPRINE. [Suspect]
     Active Substance: AZATHIOPRINE
     Indication: ABDOMINAL PAIN
     Dosage: UNK
  10. TACROLIMUS. [Suspect]
     Active Substance: TACROLIMUS
     Indication: VOMITING
     Dosage: UNK
  11. INFLIXIMAB [Suspect]
     Active Substance: INFLIXIMAB
     Indication: ABDOMINAL PAIN
  12. ETANERCEPT [Suspect]
     Active Substance: ETANERCEPT
     Indication: ABDOMINAL PAIN
     Dosage: UNK
  13. ETANERCEPT [Suspect]
     Active Substance: ETANERCEPT
     Indication: ACUTE GRAFT VERSUS HOST DISEASE
     Dosage: UNK
  14. SIROLIMUS. [Suspect]
     Active Substance: SIROLIMUS
     Indication: ACUTE GRAFT VERSUS HOST DISEASE
     Dosage: UNK
  15. INOLIMOMAB [Suspect]
     Active Substance: INOLIMOMAB
     Indication: GRAFT VERSUS HOST DISEASE IN GASTROINTESTINAL TRACT
     Dosage: UNK
  16. INFLIXIMAB [Suspect]
     Active Substance: INFLIXIMAB
     Indication: DIARRHOEA
     Dosage: UNK
  17. METHOTREXATE. [Concomitant]
     Active Substance: METHOTREXATE
     Indication: GRAFT VERSUS HOST DISEASE IN GASTROINTESTINAL TRACT
     Dosage: UNK
     Route: 065
  18. TACROLIMUS. [Suspect]
     Active Substance: TACROLIMUS
     Indication: ABDOMINAL PAIN
     Dosage: UNK
  19. ETANERCEPT [Suspect]
     Active Substance: ETANERCEPT
     Indication: GRAFT VERSUS HOST DISEASE IN GASTROINTESTINAL TRACT
     Dosage: UNK
  20. ETANERCEPT [Suspect]
     Active Substance: ETANERCEPT
     Indication: VOMITING
     Dosage: UNK
  21. SIROLIMUS. [Suspect]
     Active Substance: SIROLIMUS
     Indication: DIARRHOEA
     Dosage: UNK
  22. INOLIMOMAB [Suspect]
     Active Substance: INOLIMOMAB
     Indication: DIARRHOEA
     Dosage: UNK
  23. INOLIMOMAB [Suspect]
     Active Substance: INOLIMOMAB
     Indication: VOMITING
     Dosage: UNK
  24. INOLIMOMAB [Suspect]
     Active Substance: INOLIMOMAB
     Indication: ACUTE GRAFT VERSUS HOST DISEASE
     Dosage: UNK
  25. INFLIXIMAB [Suspect]
     Active Substance: INFLIXIMAB
     Indication: ACUTE GRAFT VERSUS HOST DISEASE
     Dosage: UNK
  26. TACROLIMUS. [Suspect]
     Active Substance: TACROLIMUS
     Indication: DIARRHOEA
     Dosage: UNK
  27. MYCOPHENOLATE MOFETIL. [Suspect]
     Active Substance: MYCOPHENOLATE MOFETIL
     Indication: VOMITING
     Dosage: UNK
  28. MYCOPHENOLATE MOFETIL. [Suspect]
     Active Substance: MYCOPHENOLATE MOFETIL
     Indication: GRAFT VERSUS HOST DISEASE IN GASTROINTESTINAL TRACT
     Dosage: UNK
  29. SIROLIMUS. [Suspect]
     Active Substance: SIROLIMUS
     Indication: ABDOMINAL PAIN
     Dosage: UNK
  30. SIROLIMUS. [Suspect]
     Active Substance: SIROLIMUS
     Indication: VOMITING
     Dosage: UNK
  31. TACROLIMUS. [Suspect]
     Active Substance: TACROLIMUS
     Indication: GRAFT VERSUS HOST DISEASE IN GASTROINTESTINAL TRACT
     Dosage: UNK
  32. TACROLIMUS. [Suspect]
     Active Substance: TACROLIMUS
     Indication: ACUTE GRAFT VERSUS HOST DISEASE
     Dosage: UNK
  33. INFLIXIMAB [Suspect]
     Active Substance: INFLIXIMAB
     Indication: VOMITING
     Dosage: UNK
  34. AZATHIOPRINE. [Suspect]
     Active Substance: AZATHIOPRINE
     Indication: VOMITING
     Dosage: UNK
  35. MYCOPHENOLATE MOFETIL. [Suspect]
     Active Substance: MYCOPHENOLATE MOFETIL
     Indication: ACUTE GRAFT VERSUS HOST DISEASE
     Dosage: UNK
     Route: 065
  36. ETANERCEPT [Suspect]
     Active Substance: ETANERCEPT
     Indication: DIARRHOEA
     Dosage: UNK
  37. SIROLIMUS. [Suspect]
     Active Substance: SIROLIMUS
     Indication: GRAFT VERSUS HOST DISEASE IN GASTROINTESTINAL TRACT
     Dosage: UNK
  38. CYCLOSPORINE. [Concomitant]
     Active Substance: CYCLOSPORINE
     Indication: GRAFT VERSUS HOST DISEASE IN GASTROINTESTINAL TRACT
     Dosage: UNK
     Route: 065

REACTIONS (3)
  - Drug ineffective [Unknown]
  - Chronic graft versus host disease in intestine [Recovered/Resolved]
  - Intentional product use issue [Unknown]
